FAERS Safety Report 20319133 (Version 1)
Quarter: 2022Q1

REPORT INFORMATION
  Report Type: Spontaneous
  Country: TR (occurrence: TR)
  Receive Date: 20220110
  Receipt Date: 20220110
  Transmission Date: 20220424
  Serious: No
  Sender: FDA-Public Use
  Company Number: TR-LUPIN PHARMACEUTICALS INC.-2021-26607

PATIENT
  Age: 43 Year
  Sex: Female

DRUGS (7)
  1. METHYLPREDNISOLONE [Suspect]
     Active Substance: METHYLPREDNISOLONE
     Indication: Inflammation
     Dosage: 40 MILLIGRAM, QD
     Route: 065
  2. DESLORATADINE [Suspect]
     Active Substance: DESLORATADINE
     Indication: Inflammation
     Dosage: 5 MILLIGRAM, QD
     Route: 065
  3. CIPROFLOXACIN [Suspect]
     Active Substance: CIPROFLOXACIN
     Indication: Inflammation
     Dosage: 500 MILLIGRAM, BID
     Route: 065
  4. JUVEDERM VOLUMA XC [Concomitant]
     Active Substance: HYALURONIC ACID\LIDOCAINE HYDROCHLORIDE
     Indication: Dermal filler injection
     Dosage: 1 MILLILITER
     Route: 065
  5. HYALURONIC ACID\LIDOCAINE [Concomitant]
     Active Substance: HYALURONIC ACID\LIDOCAINE
     Indication: Dermal filler injection
     Dosage: 1 MILLILITER
     Route: 065
  6. COLCHICINE [Concomitant]
     Active Substance: COLCHICINE
     Indication: Inflammation
     Dosage: 0.5 MILLIGRAM, TID
     Route: 065
  7. COLCHICINE [Concomitant]
     Active Substance: COLCHICINE
     Dosage: 0.5 MILLIGRAM, BID
     Route: 065

REACTIONS (1)
  - Drug ineffective [Unknown]
